FAERS Safety Report 22586793 (Version 1)
Quarter: 2023Q2

REPORT INFORMATION
  Report Type: Spontaneous
  Country: RU (occurrence: None)
  Receive Date: 20230611
  Receipt Date: 20230611
  Transmission Date: 20230721
  Serious: Yes (Hospitalization, Other)
  Sender: FDA-Public Use
  Company Number: RU-ROCHE-3359180

PATIENT
  Age: 68 Year
  Sex: Female

DRUGS (5)
  1. ATEZOLIZUMAB [Suspect]
     Active Substance: ATEZOLIZUMAB
     Indication: Lung neoplasm malignant
     Dosage: 1200 MG ON DAY 1 (21-DAY CYCLE.)
     Route: 041
  2. BEVACIZUMAB [Suspect]
     Active Substance: BEVACIZUMAB
     Indication: Lung neoplasm malignant
     Dosage: 7.5 MG/KG ON DAY 1; A 21-DAY CYCLE.
     Route: 065
  3. PACLITAXEL [Suspect]
     Active Substance: PACLITAXEL
     Indication: Lung neoplasm malignant
     Dosage: 175 MG/M2 ON DAY 1 ( 21-DAY CYCLE).
     Route: 065
  4. CARBOPLATIN [Suspect]
     Active Substance: CARBOPLATIN
     Indication: Lung neoplasm malignant
     Dosage: CARBOPLATIN AUC 5 ON DAY 1 (21-DAY CYCLE).
     Route: 065
  5. AFATINIB [Suspect]
     Active Substance: AFATINIB
     Indication: Lung neoplasm malignant
     Route: 065

REACTIONS (12)
  - Osteochondrosis [Unknown]
  - Spinal stenosis [Unknown]
  - Spinal osteoarthritis [Unknown]
  - Intervertebral disc protrusion [Unknown]
  - Vertebral foraminal stenosis [Unknown]
  - Osteosclerosis [Unknown]
  - Renal cyst [Unknown]
  - Left ventricular dysfunction [Unknown]
  - Dyslipidaemia [Unknown]
  - Herpes zoster [Unknown]
  - Arthralgia [Unknown]
  - Nodule [Unknown]
